FAERS Safety Report 14756355 (Version 1)
Quarter: 2018Q2

REPORT INFORMATION
  Report Type: Spontaneous
  Country: US (occurrence: US)
  Receive Date: 20180413
  Receipt Date: 20180413
  Transmission Date: 20180711
  Serious: Yes (Hospitalization, Other)
  Sender: FDA-Public Use
  Company Number: US-GLAXOSMITHKLINE-US2018062469

PATIENT
  Sex: Female

DRUGS (6)
  1. OXYCODONE [Concomitant]
     Active Substance: OXYCODONE
  2. TIOTROPIUM BROMIDE [Concomitant]
     Active Substance: TIOTROPIUM BROMIDE
  3. PREDNISONE. [Concomitant]
     Active Substance: PREDNISONE
  4. DOXYCYCLINE. [Concomitant]
     Active Substance: DOXYCYCLINE
  5. FLOVENT [Suspect]
     Active Substance: FLUTICASONE PROPIONATE
     Indication: CHRONIC OBSTRUCTIVE PULMONARY DISEASE
     Dosage: 2 PUFF(S), QD
     Route: 055
     Dates: start: 2014
  6. ATIVAN [Concomitant]
     Active Substance: LORAZEPAM

REACTIONS (9)
  - Hip surgery [Recovered/Resolved]
  - Productive cough [Recovering/Resolving]
  - Sputum discoloured [Unknown]
  - Chondropathy [Unknown]
  - Bone disorder [Recovered/Resolved]
  - Nasopharyngitis [Recovered/Resolved]
  - Arthralgia [Recovered/Resolved]
  - Chronic obstructive pulmonary disease [Recovering/Resolving]
  - Dyspnoea [Recovering/Resolving]

NARRATIVE: CASE EVENT DATE: 2016
